FAERS Safety Report 16965756 (Version 1)
Quarter: 2019Q4

REPORT INFORMATION
  Report Type: Spontaneous
  Country: US (occurrence: US)
  Receive Date: 20190910
  Receipt Date: 20190910
  Transmission Date: 20200122
  Serious: Yes (Hospitalization)
  Sender: FDA-Public Use
  Company Number: None

PATIENT
  Age: 52 Year
  Sex: Male
  Weight: 77.56 kg

DRUGS (3)
  1. NEXIUM [Concomitant]
     Active Substance: ESOMEPRAZOLE MAGNESIUM
  2. ESCITALOPRAM 20MG DAILY [Suspect]
     Active Substance: ESCITALOPRAM OXALATE
     Indication: DEPRESSION
  3. ESCITALOPRAM 20MG DAILY [Suspect]
     Active Substance: ESCITALOPRAM OXALATE
     Indication: ANXIETY
     Dates: start: 2011

REACTIONS (10)
  - Sleep terror [None]
  - Hyperhidrosis [None]
  - Anxiety [None]
  - Panic attack [None]
  - Balance disorder [None]
  - Depression [None]
  - Product substitution issue [None]
  - Drug withdrawal syndrome [None]
  - Sleep disorder [None]
  - Palpitations [None]

NARRATIVE: CASE EVENT DATE: 2011
